FAERS Safety Report 9981602 (Version 1)
Quarter: 2014Q1

REPORT INFORMATION
  Report Type: Report from Study
  Country: US (occurrence: US)
  Receive Date: 20140307
  Receipt Date: 20140307
  Transmission Date: 20141002
  Serious: No
  Sender: FDA-Public Use
  Company Number: US-ABBVIE-13P-163-1180042-00

PATIENT
  Age: 41 Year
  Sex: Female

DRUGS (6)
  1. HUMIRA [Suspect]
     Indication: CROHN^S DISEASE
     Dates: start: 20130823, end: 201310
  2. HUMIRA [Suspect]
     Dosage: DECREASED
     Dates: start: 20131121, end: 20131121
  3. HUMIRA [Suspect]
  4. HUMIRA [Suspect]
     Dates: start: 201310
  5. FENTANYL AL [Concomitant]
     Indication: ABDOMINAL PAIN
  6. PERCOCET [Concomitant]
     Indication: ABDOMINAL PAIN
     Dosage: 10/325MG, AS NEEDED

REACTIONS (5)
  - Fatigue [Not Recovered/Not Resolved]
  - Pain [Not Recovered/Not Resolved]
  - Arthralgia [Not Recovered/Not Resolved]
  - Pyrexia [Not Recovered/Not Resolved]
  - Muscle spasms [Not Recovered/Not Resolved]
